FAERS Safety Report 13332766 (Version 7)
Quarter: 2019Q2

REPORT INFORMATION
  Report Type: Spontaneous
  Country: US (occurrence: US)
  Receive Date: 20170314
  Receipt Date: 20190625
  Transmission Date: 20190711
  Serious: Yes (Hospitalization)
  Sender: FDA-Public Use
  Company Number: US-PFIZER INC-2016213784

PATIENT
  Age: 53 Year
  Sex: Male
  Weight: 122.7 kg

DRUGS (49)
  1. ELAVIL [Concomitant]
     Active Substance: AMITRIPTYLINE HYDROCHLORIDE
     Dosage: 100 MG, ONCE DAILY (AT BEDTIME)
     Route: 048
     Dates: start: 20171030
  2. PLAVIX [Concomitant]
     Active Substance: CLOPIDOGREL BISULFATE
     Dosage: 75 MG, ONCE DAILY
     Route: 048
     Dates: start: 20160212
  3. HUMALOG [Concomitant]
     Active Substance: INSULIN LISPRO
     Dosage: 8 IU, TWICE DAILY (BREAKFAST AND LUNCH)
     Route: 058
  4. HUMALOG [Concomitant]
     Active Substance: INSULIN LISPRO
     Dosage: 20 IU, DAILY (5 IU WITH BREAKFAST AND LUNCH, 10 IU WITH SUPPER)
     Route: 058
     Dates: start: 20150511
  5. PRINIVIL [Concomitant]
     Active Substance: LISINOPRIL
     Dosage: 40 MG, ONCE DAILY
     Route: 048
     Dates: start: 20180305
  6. PRILOSEC [Concomitant]
     Active Substance: OMEPRAZOLE MAGNESIUM
     Dosage: 20 MG, ONCE DAILY (EVERY MORNING)
     Route: 048
     Dates: start: 20160229
  7. KENALOG [Concomitant]
     Active Substance: TRIAMCINOLONE ACETONIDE
     Indication: PRURITUS
  8. PROAIR HFA [Concomitant]
     Active Substance: ALBUTEROL SULFATE
     Indication: DYSPNOEA
     Dosage: 2 DF, AS NEEDED (2 PUFFS EVERY 4 HOURS)
     Route: 055
     Dates: start: 20160608
  9. LOFIBRA [Concomitant]
     Active Substance: FENOFIBRATE
     Dosage: 54 MG, DAILY
     Route: 048
     Dates: start: 20171226
  10. LYRICA [Suspect]
     Active Substance: PREGABALIN
     Indication: DIABETES MELLITUS
  11. ASPIRIN 81 [Concomitant]
     Active Substance: ASPIRIN
     Dosage: 81 MG, ONCE DAILY
     Route: 048
  12. ADVIL [Concomitant]
     Active Substance: IBUPROFEN
     Indication: PAIN
     Dosage: 200-600 MG, AS NEEDED (4 TIMES A DAY)
     Route: 048
  13. CENTRUM [Concomitant]
     Active Substance: VITAMINS
     Dosage: 1 DF, ONCE DAILY (IN THE MORNING)
     Route: 048
  14. PROVENTIL [Concomitant]
     Active Substance: ALBUTEROL
     Indication: DYSPNOEA
     Dosage: 2 DF, AS NEEDED (2 PUFFS EVERY 4 HOURS)
     Route: 055
     Dates: start: 20160608
  15. COMBIVENT RESPIMAT [Concomitant]
     Active Substance: ALBUTEROL SULFATE\IPRATROPIUM BROMIDE
     Dosage: 1 PUFF (DF), 2 TIMES A DAY
     Route: 055
     Dates: start: 20160613
  16. LASIX [Concomitant]
     Active Substance: FUROSEMIDE
     Dosage: 40 MG, ONCE DAILY (AS NEEDED IF GAINED MORE THAN 2 POUNDS A DAY)
     Route: 048
     Dates: start: 20180227
  17. LYRICA [Suspect]
     Active Substance: PREGABALIN
     Indication: DIABETIC NEUROPATHY
     Dosage: 75 MG, THRICE DAILY
     Route: 048
     Dates: start: 2007
  18. COREG [Concomitant]
     Active Substance: CARVEDILOL
     Dosage: 25 MG, TWICE DAILY (WITH MEALS)
     Route: 048
     Dates: start: 20160205
  19. TYLENOL [Concomitant]
     Active Substance: ACETAMINOPHEN
     Dosage: 500 MG, AS NEEDED (EVERY 4 HOURS)
     Route: 048
  20. ELAVIL [Concomitant]
     Active Substance: AMITRIPTYLINE HYDROCHLORIDE
     Dosage: 100 MG, ONCE DAILY (AT BEDTIME)
     Route: 048
     Dates: start: 20160627
  21. HYDROCHLOROTHIAZIDE. [Concomitant]
     Active Substance: HYDROCHLOROTHIAZIDE
     Dosage: 25 MG, ONCE DAILY
     Route: 048
     Dates: start: 20170830
  22. TRESIBA [Concomitant]
     Active Substance: INSULIN DEGLUDEC
     Dosage: 100 IU, ONCE DAILY
     Route: 058
     Dates: start: 20160111
  23. HUMALOG [Concomitant]
     Active Substance: INSULIN LISPRO
     Dosage: 10 IU, UNK
     Route: 058
     Dates: start: 20150507
  24. ARISTOCORT [Concomitant]
     Active Substance: TRIAMCINOLONE DIACETATE
     Indication: PRURITUS
  25. KLOR-CON M10 [Concomitant]
     Active Substance: POTASSIUM CHLORIDE
     Dosage: 10 MEQ, ONCE DAILY (AS NEEDED, IF TAKING LASIX)
     Route: 048
     Dates: start: 20180227
  26. REPATHA [Concomitant]
     Active Substance: EVOLOCUMAB
     Dosage: 140 MG, UNK
     Dates: start: 20170830
  27. HUMALOG [Concomitant]
     Active Substance: INSULIN LISPRO
     Dosage: 4 IU, UNK
     Route: 058
     Dates: start: 20150507
  28. HUMALOG [Concomitant]
     Active Substance: INSULIN LISPRO
     Dosage: 4-15 IU, FOUR TIMES DAILY
     Route: 058
  29. ZESTRIL [Concomitant]
     Active Substance: LISINOPRIL
     Dosage: 40 MG, ONCE DAILY
     Route: 048
     Dates: start: 20160407
  30. VENTOLIN [Concomitant]
     Active Substance: ALBUTEROL SULFATE
     Indication: DYSPNOEA
     Dosage: 2 DF, AS NEEDED (2 PUFFS EVERY 4 HOURS)
     Route: 055
     Dates: start: 20160608
  31. IMODIUM [Concomitant]
     Active Substance: LOPERAMIDE HYDROCHLORIDE
     Dosage: UNK, AS NEEDED (EVERY 4 HOURS)
     Route: 048
  32. HYDROCHLOROTHIAZIDE. [Concomitant]
     Active Substance: HYDROCHLOROTHIAZIDE
     Dosage: 12.5 MG, ONCE DAILY
     Route: 048
  33. HUMALOG [Concomitant]
     Active Substance: INSULIN LISPRO
     Dosage: 15 IU, UNK
     Route: 058
     Dates: start: 20150507
  34. NITROSTAT [Concomitant]
     Active Substance: NITROGLYCERIN
     Indication: CHEST PAIN
     Dosage: 0.4 MG, AS NEEDED (EVERY 5 MINUTES)
     Route: 060
     Dates: start: 20160221
  35. PRAVACHOL [Concomitant]
     Active Substance: PRAVASTATIN SODIUM
     Dosage: 40 MG, ONCE DAILY
     Route: 048
     Dates: start: 20160331
  36. LYRICA [Suspect]
     Active Substance: PREGABALIN
     Indication: FIBROMYALGIA
     Dosage: 75 MG, 3X/DAY
     Route: 048
     Dates: start: 2007
  37. PLAVIX [Concomitant]
     Active Substance: CLOPIDOGREL BISULFATE
     Dosage: 75 MG, DAILY
     Route: 048
     Dates: start: 20180305
  38. MOTRIN IB [Concomitant]
     Active Substance: IBUPROFEN
     Indication: PAIN
     Dosage: 200-600 MG, AS NEEDED (4 TIMES A DAY)
     Route: 048
  39. HUMALOG [Concomitant]
     Active Substance: INSULIN LISPRO
     Dosage: 10 IU, ONCE DAILY (IN THE EVENING WITH SUPPER)
     Route: 058
  40. KENALOG [Concomitant]
     Active Substance: TRIAMCINOLONE ACETONIDE
     Indication: RASH
     Dosage: UNK, TWICE DAILY (APPLY TO AFFECTED AREA ON FOREARM, 2 TIMES A DAY)
     Route: 061
     Dates: start: 20180316
  41. ARISTOCORT [Concomitant]
     Active Substance: TRIAMCINOLONE DIACETATE
     Indication: RASH
     Dosage: UNK, TWICE DAILY (APPLY TO AFFECTED AREA ON FOREARM, 2 TIMES A DAY)
     Route: 061
     Dates: start: 20180316
  42. NORMAL SALINE [Concomitant]
     Active Substance: SODIUM CHLORIDE
     Indication: COUGH
     Dosage: 3 ML, AS NEEDED (EVERY 2 HOURS)
     Route: 055
     Dates: start: 20171121
  43. NORMAL SALINE [Concomitant]
     Active Substance: SODIUM CHLORIDE
     Indication: NASAL CONGESTION
  44. NORVASC [Concomitant]
     Active Substance: AMLODIPINE BESYLATE
     Dosage: 10 MG, ONCE DAILY
     Route: 048
     Dates: start: 20170427
  45. TRESIBA [Concomitant]
     Active Substance: INSULIN DEGLUDEC
     Dosage: 90 IU, ONCE DAILY
     Route: 058
     Dates: start: 20171101
  46. HUMALOG [Concomitant]
     Active Substance: INSULIN LISPRO
     Dosage: 12 IU, UNK
     Route: 058
     Dates: start: 20150507
  47. HUMALOG [Concomitant]
     Active Substance: INSULIN LISPRO
     Dosage: 86 IU, DAILY (23 IU WITH BREAKFAST AND LUNCH, 25 IU WITH SUPPER + 15 IU AT BEDTIME)
     Route: 058
     Dates: start: 20170914
  48. TYLENOL [Concomitant]
     Active Substance: ACETAMINOPHEN
     Indication: PAIN
     Dosage: 650 MG, AS NEEDED (EVERY 6 HOURS)
     Route: 048
  49. ALCOHOL WIPE [Concomitant]
     Active Substance: ISOPROPYL ALCOHOL
     Dosage: 1 DF, TWICE DAILY
     Route: 061
     Dates: start: 20160627

REACTIONS (2)
  - Cardiac failure congestive [Recovered/Resolved]
  - Influenza [Unknown]
